FAERS Safety Report 4642731-4 (Version None)
Quarter: 2005Q2

REPORT INFORMATION
  Report Type: 
  Country: None (occurrence: None)
  Receive Date: 20050420
  Receipt Date: 20050405
  Transmission Date: 20051028
  Serious: Yes (Hospitalization)
  Sender: FDA-Public Use
  Company Number: GBS050317012

PATIENT
  Age: 57 Year
  Sex: Female
  Weight: 49 kg

DRUGS (4)
  1. YENTREVE (DULOXETINE HYDROCHLORIDE) [Suspect]
     Indication: DEPRESSION
     Dosage: 60 MG
     Dates: start: 20050311, end: 20050311
  2. GABAPENTIN [Concomitant]
  3. TRAMADOL [Concomitant]
  4. ACETAMINOPHEN [Concomitant]

REACTIONS (2)
  - DIARRHOEA [None]
  - SYNCOPE [None]
